FAERS Safety Report 18346334 (Version 2)
Quarter: 2020Q4

REPORT INFORMATION
  Report Type: Spontaneous
  Country: NZ (occurrence: NZ)
  Receive Date: 20201005
  Receipt Date: 20201206
  Transmission Date: 20210114
  Serious: Yes (Life-Threatening, Hospitalization)
  Sender: FDA-Public Use
  Company Number: NZ-JNJFOC-20200941169

PATIENT
  Age: 15 Year
  Sex: Male

DRUGS (3)
  1. PREDNISONE. [Interacting]
     Active Substance: PREDNISONE
     Route: 048
  2. PREDNISONE. [Interacting]
     Active Substance: PREDNISONE
     Indication: ASPERGILLUS INFECTION
     Route: 048
  3. SPORANOX [Suspect]
     Active Substance: ITRACONAZOLE
     Indication: ASPERGILLUS INFECTION
     Route: 048

REACTIONS (2)
  - Drug interaction [Unknown]
  - Hyperglycaemic hyperosmolar nonketotic syndrome [Recovering/Resolving]
